FAERS Safety Report 5630578-1 (Version None)
Quarter: 2008Q1

REPORT INFORMATION
  Report Type: 
  Country: None (occurrence: None)
  Receive Date: 20080219
  Receipt Date: 20080212
  Transmission Date: 20080703
  Serious: Yes (Other)
  Sender: FDA-Public Use
  Company Number: B0476266A

PATIENT
  Age: 8 Year
  Sex: Female
  Weight: 25 kg

DRUGS (7)
  1. SEREVENT [Suspect]
     Indication: ASTHMA
     Dosage: 50MCG TWICE PER DAY
     Route: 055
     Dates: start: 20070612, end: 20070612
  2. HUSCODE [Suspect]
     Indication: BRONCHITIS
     Route: 048
     Dates: start: 20070612, end: 20070612
  3. MUCOSOLVAN [Concomitant]
     Indication: BRONCHITIS
     Dosage: 45MG PER DAY
     Route: 048
     Dates: start: 20070612, end: 20070612
  4. BETAMETHASONE [Concomitant]
     Indication: BRONCHITIS
     Dosage: 1.5MG PER DAY
     Route: 048
     Dates: start: 20070612, end: 20070612
  5. PA [Concomitant]
     Indication: BRONCHITIS
     Route: 048
     Dates: start: 20070612, end: 20070612
  6. FLUTIDE [Concomitant]
     Indication: ASTHMA
     Dosage: 200MCG PER DAY
     Route: 055
     Dates: start: 20070612, end: 20070612
  7. LYSOZYME HYDROCHLORIDE [Concomitant]
     Indication: BRONCHITIS
     Dosage: 90MG PER DAY
     Route: 048
     Dates: start: 20070612, end: 20070612

REACTIONS (2)
  - ABNORMAL BEHAVIOUR [None]
  - PYREXIA [None]
